FAERS Safety Report 18825688 (Version 1)
Quarter: 2021Q1

REPORT INFORMATION
  Report Type: Spontaneous
  Country: US (occurrence: US)
  Receive Date: 20210202
  Receipt Date: 20210202
  Transmission Date: 20210419
  Serious: No
  Sender: FDA-Public Use
  Company Number: US-PFIZER INC-2021086947

PATIENT
  Sex: Male

DRUGS (2)
  1. PHENELZINE SULFATE. [Suspect]
     Active Substance: PHENELZINE SULFATE
     Indication: DEPRESSION
     Dosage: 3 DF, DAILY
  2. PHENELZINE SULFATE. [Interacting]
     Active Substance: PHENELZINE SULFATE
     Dosage: WAS TAKING 3 TABS DAILY AND NOW TAKING HALF OF  THAT IN COMBINATION WITH OTHER DRUGS

REACTIONS (1)
  - Labelled drug-food interaction issue [Unknown]
